FAERS Safety Report 17318030 (Version 1)
Quarter: 2020Q1

REPORT INFORMATION
  Report Type: Spontaneous
  Country: DE (occurrence: DE)
  Receive Date: 20200124
  Receipt Date: 20200124
  Transmission Date: 20200409
  Serious: Yes (Other)
  Sender: FDA-Public Use
  Company Number: DE-ASTRAZENECA-2020SE09738

PATIENT
  Age: 49 Year
  Sex: Female
  Weight: 121.5 kg

DRUGS (3)
  1. METFORMIN [Concomitant]
     Active Substance: METFORMIN HYDROCHLORIDE
     Dosage: 1000 MG 1-0-1
  2. FORXIGA [Suspect]
     Active Substance: DAPAGLIFLOZIN
     Route: 048
  3. LIRAGLUTID [Concomitant]
     Active Substance: LIRAGLUTIDE
     Dosage: 1000 MG 1-0-1

REACTIONS (2)
  - Diarrhoea [Unknown]
  - Weight decreased [Unknown]
